FAERS Safety Report 13018999 (Version 1)
Quarter: 2016Q4

REPORT INFORMATION
  Report Type: Spontaneous
  Country: US (occurrence: US)
  Receive Date: 20161212
  Receipt Date: 20161212
  Transmission Date: 20170207
  Serious: No
  Sender: FDA-Public Use
  Company Number: US-ROCHE-1448202

PATIENT
  Sex: Female
  Weight: 73.09 kg

DRUGS (13)
  1. FAMOTIDINE. [Concomitant]
     Active Substance: FAMOTIDINE
     Indication: GASTROOESOPHAGEAL REFLUX DISEASE
     Route: 065
     Dates: start: 20150513
  2. LYRICA [Suspect]
     Active Substance: PREGABALIN
     Indication: PAIN
     Dosage: MORNING 6 AM, AFTERNOON 2 PM AND BED TIME (6 PM)
     Route: 048
  3. ALDACTONE [Concomitant]
     Active Substance: SPIRONOLACTONE
     Dosage: TAKE 1 TABLET BY MOUTH ONE TIME PER DAY
     Route: 048
  4. VALIUM [Suspect]
     Active Substance: DIAZEPAM
     Indication: PRODUCT USED FOR UNKNOWN INDICATION
     Route: 065
  5. LYRICA [Suspect]
     Active Substance: PREGABALIN
     Indication: FIBROMYALGIA
  6. ACETAMINOFEN [Concomitant]
     Active Substance: ACETAMINOPHEN
     Indication: PAIN
     Dosage: AS NEEDED
     Route: 065
  7. HYDROCODONE BITARTRATE AND ACETAMINOPHEN [Concomitant]
     Active Substance: ACETAMINOPHEN\HYDROCODONE BITARTRATE
     Indication: ANALGESIC THERAPY
     Dosage: 1 TABLET, BU MOUTH, EVERY 6 HRS AS NEEDED
     Route: 048
  8. PEPCID [Concomitant]
     Active Substance: FAMOTIDINE
     Dosage: 1 TABLET BY MOUTH EVERY NIGHT AT BED TIME FOR STOMACH
     Route: 048
  9. TOBACCO [Concomitant]
     Active Substance: TOBACCO LEAF
  10. NITROGLYCERIN. [Concomitant]
     Active Substance: NITROGLYCERIN
     Indication: CHEST PAIN
     Dosage: 1 TABLET UNDER THE TONGUE EVERY 5 MINUTES ?MAXIMUM 3 DODES PER 15 MIN
     Route: 048
  11. DURAGESIC [Concomitant]
     Active Substance: FENTANYL
     Dosage: 50 MCG/HR PT72, PLACED 1 PATCH ONTO SKIN EVERY 72 HOURS
     Route: 065
  12. ELAVIL [Concomitant]
     Active Substance: AMITRIPTYLINE HYDROCHLORIDE
     Dosage: 1 TABLET ORAL EVERY NIGHT AT BED TIME
     Route: 048
  13. KENALOG [Concomitant]
     Active Substance: TRIAMCINOLONE ACETONIDE
     Dosage: APPLY SPARINGLY TWICE DAILY AS NEEDED TO AFFECTED AREA
     Route: 065

REACTIONS (2)
  - Drug hypersensitivity [Unknown]
  - Rash vesicular [Not Recovered/Not Resolved]
